FAERS Safety Report 6081417-9 (Version None)
Quarter: 2009Q1

REPORT INFORMATION
  Report Type: 
  Country: None (occurrence: None)
  Receive Date: 20090213
  Receipt Date: 20090205
  Transmission Date: 20090719
  Serious: Yes (Other)
  Sender: FDA-Public Use
  Company Number: 2009SP001526

PATIENT
  Age: 56 Year
  Sex: Male

DRUGS (2)
  1. TEMODAL [Suspect]
     Indication: GLIOBLASTOMA MULTIFORME
     Dosage: 150 MG/M2; QD; PO
     Route: 048
     Dates: start: 20090113, end: 20090117
  2. INTERFERON BETA (INTERFERON BETA) [Suspect]
     Indication: DRUG USE FOR UNKNOWN INDICATION
     Dates: start: 20090113, end: 20090117

REACTIONS (1)
  - PNEUMONIA [None]
